FAERS Safety Report 6452965-4 (Version None)
Quarter: 2009Q4

REPORT INFORMATION
  Report Type: 
  Country: None (occurrence: None)
  Receive Date: 20091124
  Receipt Date: 20091119
  Transmission Date: 20100525
  Serious: Yes (Death)
  Sender: FDA-Public Use
  Company Number: PHEH2009US15681

PATIENT
  Sex: Male
  Weight: 95.692 kg

DRUGS (5)
  1. EXJADE [Suspect]
     Indication: IRON OVERLOAD
     Dosage: 2000 MG, QD
     Route: 048
     Dates: start: 20080530
  2. AMICAR [Concomitant]
     Dosage: 1 G, Q6H
  3. LOMOTIL [Concomitant]
     Dosage: 2.5 MG, PRN
     Route: 048
  4. GABAPENTIN [Concomitant]
     Dosage: 600 MG, BID
  5. FOLIC ACID [Concomitant]
     Dosage: 1 MG
     Route: 048

REACTIONS (2)
  - ACUTE MYELOID LEUKAEMIA [None]
  - WHITE BLOOD CELL COUNT INCREASED [None]
